FAERS Safety Report 17762398 (Version 2)
Quarter: 2020Q2

REPORT INFORMATION
  Report Type: Report from Study
  Country: US (occurrence: US)
  Receive Date: 20200508
  Receipt Date: 20200613
  Transmission Date: 20200714
  Serious: Yes (Other)
  Sender: FDA-Public Use
  Company Number: NVSC2020US124996

PATIENT
  Age: 54 Year
  Sex: Male

DRUGS (1)
  1. COSENTYX [Suspect]
     Active Substance: SECUKINUMAB
     Indication: PSORIATIC ARTHROPATHY
     Dosage: UNK UNK, QMO
     Route: 058
     Dates: start: 201909

REACTIONS (9)
  - Ageusia [Recovered/Resolved]
  - Anosmia [Recovered/Resolved]
  - Respiratory disorder [Recovered/Resolved]
  - Influenza like illness [Recovered/Resolved]
  - Coronavirus infection [Recovered/Resolved]
  - Ill-defined disorder [Recovered/Resolved]
  - Product administration error [Unknown]
  - Incorrect dose administered [Unknown]
  - Pyrexia [Recovered/Resolved]

NARRATIVE: CASE EVENT DATE: 201912
